FAERS Safety Report 21499065 (Version 1)
Quarter: 2022Q4

REPORT INFORMATION
  Report Type: Spontaneous
  Country: IR (occurrence: IR)
  Receive Date: 20221024
  Receipt Date: 20221024
  Transmission Date: 20230112
  Serious: Yes (Life-Threatening, Hospitalization)
  Sender: FDA-Public Use
  Company Number: IR-MYLANLABS-2022M1117070

PATIENT
  Age: 35 Year
  Sex: Female

DRUGS (2)
  1. EPINEPHRINE [Suspect]
     Active Substance: EPINEPHRINE
     Indication: Cardiogenic shock
     Dosage: 40 MICRO PER MINUTE
     Route: 065
  2. DOPAMINE [Suspect]
     Active Substance: DOPAMINE HYDROCHLORIDE
     Indication: Cardiogenic shock
     Dosage: 20 MICRO PER MINUTE
     Route: 065

REACTIONS (1)
  - Drug ineffective [Unknown]
